FAERS Safety Report 13155780 (Version 1)
Quarter: 2017Q1

REPORT INFORMATION
  Report Type: Spontaneous
  Country: US (occurrence: US)
  Receive Date: 20170126
  Receipt Date: 20170126
  Transmission Date: 20170428
  Serious: No
  Sender: FDA-Public Use
  Company Number: US-ROCHE-1353025

PATIENT
  Sex: Male
  Weight: 78.54 kg

DRUGS (3)
  1. FLONASE [Concomitant]
     Active Substance: FLUTICASONE PROPIONATE
  2. XANAX [Concomitant]
     Active Substance: ALPRAZOLAM
  3. VALIUM [Suspect]
     Active Substance: DIAZEPAM
     Indication: INSOMNIA
     Route: 048

REACTIONS (6)
  - Peripheral swelling [Recovered/Resolved]
  - Product quality issue [Unknown]
  - Therapy non-responder [Unknown]
  - Somnolence [Unknown]
  - Drug hypersensitivity [Unknown]
  - Drug ineffective [Unknown]
